FAERS Safety Report 23150806 (Version 1)
Quarter: 2023Q4

REPORT INFORMATION
  Report Type: Report from Study
  Country: US (occurrence: US)
  Receive Date: 20231106
  Receipt Date: 20231106
  Transmission Date: 20240110
  Serious: Yes (Hospitalization)
  Sender: FDA-Public Use
  Company Number: US-BAYER-2023A148253

PATIENT
  Age: 55 Year
  Sex: Female
  Weight: 56.689 kg

DRUGS (3)
  1. ADEMPAS [Suspect]
     Active Substance: RIOCIGUAT
     Indication: Pulmonary arterial hypertension
     Dosage: 2.5 MG, TID
     Route: 048
     Dates: start: 20230809
  2. UPTRAVI [Suspect]
     Active Substance: SELEXIPAG
  3. OPSUMIT [Concomitant]
     Active Substance: MACITENTAN

REACTIONS (4)
  - Gastrointestinal disorder [None]
  - Vomiting [None]
  - Food refusal [None]
  - Fluid intake reduced [None]

NARRATIVE: CASE EVENT DATE: 20230101
